FAERS Safety Report 19834669 (Version 1)
Quarter: 2021Q3

REPORT INFORMATION
  Report Type: Other
  Country: US (occurrence: US)
  Receive Date: 20210915
  Receipt Date: 20210915
  Transmission Date: 20211014
  Serious: No
  Sender: FDA-Public Use
  Company Number: US-LEADIANT BIOSCIENCES INC-2020STPI000344

PATIENT
  Age: 43 Year
  Sex: Male

DRUGS (2)
  1. MATULANE [Suspect]
     Active Substance: PROCARBAZINE HYDROCHLORIDE
     Indication: BRAIN NEOPLASM MALIGNANT
     Dosage: 50 MG ON DAYS 8?21 OF 8 WEEK CYCLE
     Route: 048
     Dates: start: 20200213
  2. GLEOSTINE [Concomitant]
     Active Substance: LOMUSTINE
     Dosage: 10 MG AND 40 MG/ TOTAL DAILY DOSE 210 MG

REACTIONS (3)
  - Urticaria [Not Recovered/Not Resolved]
  - Pruritus [Not Recovered/Not Resolved]
  - Rash [Not Recovered/Not Resolved]

NARRATIVE: CASE EVENT DATE: 20200602
